FAERS Safety Report 8524550-1 (Version None)
Quarter: 2012Q3

REPORT INFORMATION
  Report Type: 
  Country: None (occurrence: None)
  Receive Date: 20120716
  Receipt Date: 20120716
  Transmission Date: 20120928
  Serious: Yes (Life-Threatening, Disabling, Other)
  Sender: FDA-Public Use
  Company Number: None

PATIENT
  Age: 57 Year
  Sex: Male
  Weight: 140.6151 kg

DRUGS (1)
  1. FENTANYL CITRATE [Suspect]
     Indication: PAIN
     Dosage: 1 PATCH  EVERY 48 HOURS TRANSDERMAL
     Route: 062
     Dates: start: 20120528, end: 20120603

REACTIONS (22)
  - DYSGEUSIA [None]
  - CHILLS [None]
  - WEIGHT DECREASED [None]
  - MORBID THOUGHTS [None]
  - HEADACHE [None]
  - DRUG INEFFECTIVE [None]
  - APPETITE DISORDER [None]
  - HYPERAESTHESIA [None]
  - INSOMNIA [None]
  - HYPERACUSIS [None]
  - PHOTOPHOBIA [None]
  - PRODUCT SUBSTITUTION ISSUE [None]
  - PAIN [None]
  - ABDOMINAL PAIN [None]
  - SKIN ODOUR ABNORMAL [None]
  - BLINDNESS [None]
  - RESTLESS LEGS SYNDROME [None]
  - WITHDRAWAL SYNDROME [None]
  - TREMOR [None]
  - HYPERHIDROSIS [None]
  - HALLUCINATION [None]
  - CONSTIPATION [None]
